FAERS Safety Report 4973038-3 (Version None)
Quarter: 2006Q2

REPORT INFORMATION
  Report Type: 
  Country: None (occurrence: None)
  Receive Date: 20060414
  Receipt Date: 20060221
  Transmission Date: 20061013
  Serious: Yes (Death, Other)
  Sender: FDA-Public Use
  Company Number: 2006AP00921

PATIENT
  Age: 80 Year
  Sex: Male

DRUGS (4)
  1. ZOLADEX [Suspect]
     Indication: PROSTATE CANCER
     Route: 058
  2. CIPROXAN [Concomitant]
  3. NU-LOTAN [Concomitant]
     Route: 048
  4. LEUPLIN [Concomitant]

REACTIONS (2)
  - DEATH [None]
  - INTERSTITIAL LUNG DISEASE [None]
